FAERS Safety Report 7189388-9 (Version None)
Quarter: 2010Q4

REPORT INFORMATION
  Report Type: 
  Country: None (occurrence: None)
  Receive Date: 20101222
  Receipt Date: 20101014
  Transmission Date: 20110411
  Serious: No
  Sender: FDA-Public Use
  Company Number: US-AMGEN-TCS421743

PATIENT

DRUGS (11)
  1. ENBREL [Suspect]
     Indication: RHEUMATOID ARTHRITIS
     Dosage: 50 MG, QWK
     Route: 058
     Dates: start: 20100129
  2. METHOTREXATE [Concomitant]
  3. CELEBREX [Concomitant]
  4. CYMBALTA [Concomitant]
  5. GLUCOPHAGE [Concomitant]
  6. LISINOPRIL [Concomitant]
  7. CRESTOR [Concomitant]
  8. ROZEREM [Concomitant]
  9. FLONASE [Concomitant]
  10. ALBUTEROL [Concomitant]
  11. ADVAIR [Concomitant]

REACTIONS (3)
  - INJECTION SITE HAEMORRHAGE [None]
  - INJECTION SITE PAIN [None]
  - NEEDLE ISSUE [None]
